FAERS Safety Report 5500076-4 (Version None)
Quarter: 2007Q4

REPORT INFORMATION
  Report Type: 
  Country: None (occurrence: None)
  Receive Date: 20071024
  Receipt Date: 20071009
  Transmission Date: 20080405
  Serious: Yes (Other)
  Sender: FDA-Public Use
  Company Number: 100#08#2007-04022

PATIENT
  Age: 36 Year
  Sex: Female

DRUGS (2)
  1. LEFLUNOMIDE [Suspect]
     Indication: RHEUMATOID ARTHRITIS
     Dosage: 20MG
  2. PREDNISOLONE [Concomitant]

REACTIONS (3)
  - LEPROSY [None]
  - TREATMENT NONCOMPLIANCE [None]
  - TUBERCULOSIS [None]
